FAERS Safety Report 21465872 (Version 1)
Quarter: 2022Q4

REPORT INFORMATION
  Report Type: Spontaneous
  Country: US (occurrence: US)
  Receive Date: 20221017
  Receipt Date: 20221017
  Transmission Date: 20230113
  Serious: Yes (Other)
  Sender: FDA-Public Use
  Company Number: US-COOPERSURGICAL, INC.-US-2022CPS003260

PATIENT
  Sex: Female
  Weight: 94.331 kg

DRUGS (2)
  1. PARAGARD T 380A [Suspect]
     Active Substance: COPPER
     Indication: Contraception
     Dosage: UNK
     Route: 015
     Dates: start: 20201111, end: 20210419
  2. FLAGYL [Concomitant]
     Active Substance: METRONIDAZOLE\METRONIDAZOLE HYDROCHLORIDE
     Indication: Bacterial vaginosis
     Route: 065

REACTIONS (6)
  - Polycystic ovaries [Not Recovered/Not Resolved]
  - Abnormal uterine bleeding [Not Recovered/Not Resolved]
  - Muscle spasms [Not Recovered/Not Resolved]
  - Pain [Not Recovered/Not Resolved]
  - Dysmenorrhoea [Not Recovered/Not Resolved]
  - Pelvic pain [Not Recovered/Not Resolved]

NARRATIVE: CASE EVENT DATE: 20210101
